FAERS Safety Report 13385454 (Version 1)
Quarter: 2017Q1

REPORT INFORMATION
  Report Type: Spontaneous
  Country: US (occurrence: US)
  Receive Date: 20170330
  Receipt Date: 20170330
  Transmission Date: 20170429
  Serious: Yes (Life-Threatening, Disabling)
  Sender: FDA-Public Use
  Company Number: None

PATIENT
  Age: 72 Year
  Sex: Male
  Weight: 72.45 kg

DRUGS (14)
  1. MULTIVITAMIN [Concomitant]
     Active Substance: VITAMINS
  2. BELSOMRA [Suspect]
     Active Substance: SUVOREXANT
     Indication: RESTLESS LEGS SYNDROME
     Dosage: ?          QUANTITY:1 TABLET(S);?
     Route: 048
     Dates: start: 20170303, end: 20170308
  3. METOPROLOL TARTRATE. [Concomitant]
     Active Substance: METOPROLOL TARTRATE
  4. FLUOXETINE [Concomitant]
     Active Substance: FLUOXETINE HYDROCHLORIDE
  5. BABY ASPIRIN [Concomitant]
     Active Substance: ASPIRIN
  6. NITROGLYCERIN. [Concomitant]
     Active Substance: NITROGLYCERIN
  7. FOLIC ACID. [Concomitant]
     Active Substance: FOLIC ACID
  8. FISH OIL [Concomitant]
     Active Substance: FISH OIL
  9. BELSOMRA [Suspect]
     Active Substance: SUVOREXANT
     Indication: RAPID EYE MOVEMENTS SLEEP ABNORMAL
     Dosage: ?          QUANTITY:1 TABLET(S);?
     Route: 048
     Dates: start: 20170303, end: 20170308
  10. TAMSULOIN [Concomitant]
  11. TYLENOL ARTHRITIS PAIN [Concomitant]
     Active Substance: ACETAMINOPHEN
  12. PRAVASTATIN. [Concomitant]
     Active Substance: PRAVASTATIN
  13. BUPROPION. [Concomitant]
     Active Substance: BUPROPION
  14. VITAMIN D [Concomitant]
     Active Substance: CHOLECALCIFEROL

REACTIONS (7)
  - Therapy change [None]
  - Judgement impaired [None]
  - Anxiety [None]
  - Anger [None]
  - Depression [None]
  - Fatigue [None]
  - Fear [None]

NARRATIVE: CASE EVENT DATE: 20170308
